FAERS Safety Report 5955170-0 (Version None)
Quarter: 2008Q4

REPORT INFORMATION
  Report Type: 
  Country: None (occurrence: None)
  Receive Date: 20081112
  Receipt Date: 20081022
  Transmission Date: 20090506
  Serious: Yes (Hospitalization)
  Sender: FDA-Public Use
  Company Number: 2008S1000464

PATIENT
  Sex: Female

DRUGS (2)
  1. ACITRETIN [Suspect]
     Indication: SKIN DISORDER
     Dosage: 25 MG;HS;PO
     Route: 048
  2. DOXYCYCLINE [Suspect]
     Indication: DRUG USE FOR UNKNOWN INDICATION

REACTIONS (2)
  - ANGINA PECTORIS [None]
  - CONTRAINDICATION TO MEDICAL TREATMENT [None]
